FAERS Safety Report 7553757-5 (Version None)
Quarter: 2011Q2

REPORT INFORMATION
  Report Type: 
  Country: None (occurrence: None)
  Receive Date: 20110617
  Receipt Date: 20110609
  Transmission Date: 20111010
  Serious: Yes (Other)
  Sender: FDA-Public Use
  Company Number: JP-ASTELLAS-2011JP003649

PATIENT
  Age: 76 Year
  Sex: Male

DRUGS (10)
  1. ALLEGRA [Concomitant]
     Dosage: 60 MG, UNKNOWN/D
     Route: 048
  2. VERAPAMIL HCL [Concomitant]
     Dosage: 40 MG, UNKNOWN/D
     Route: 048
  3. SINGULAIR [Concomitant]
     Dosage: 5 MG, UNKNOWN/D
     Route: 048
  4. VESICARE [Suspect]
     Dosage: 5 MG, UNKNOWN/D
     Route: 048
     Dates: start: 20110218, end: 20110413
  5. ENALAPRIL MALEATE [Concomitant]
     Dosage: 2.5 MG, UNKNOWN/D
     Route: 048
  6. AMLODIPINE [Concomitant]
     Dosage: 2.5 MG, UNKNOWN/D
     Route: 048
  7. DIGOXIN [Concomitant]
     Dosage: 0.125 MG, UNKNOWN/D
     Route: 048
  8. FUROSEMIDE [Concomitant]
     Dosage: 20 MG, UNKNOWN/D
     Route: 048
  9. WARFARIN SODIUM [Concomitant]
     Dosage: 1 MG, UNKNOWN/D
     Route: 048
  10. TAMSULOSIN HCL [Concomitant]
     Dosage: 0.2 MG, UNKNOWN/D
     Route: 048

REACTIONS (2)
  - VISUAL ACUITY REDUCED [None]
  - INTRAOCULAR PRESSURE INCREASED [None]
